FAERS Safety Report 13131973 (Version 3)
Quarter: 2017Q1

REPORT INFORMATION
  Report Type: Spontaneous
  Country: US (occurrence: US)
  Receive Date: 20170119
  Receipt Date: 20170329
  Transmission Date: 20170428
  Serious: No
  Sender: FDA-Public Use
  Company Number: US-PFIZER INC-2017024080

PATIENT
  Age: 62 Year
  Sex: Female
  Weight: 49 kg

DRUGS (6)
  1. FESOTERODINE [Suspect]
     Active Substance: FESOTERODINE
     Indication: MULTIPLE SCLEROSIS
     Dosage: 4 MG, 1X/DAY
     Route: 048
  2. AVONEX [Concomitant]
     Active Substance: INTERFERON BETA-1A
     Indication: MULTIPLE SCLEROSIS
     Dosage: UNK, WEEKLY
     Route: 030
  3. CYMBALTA [Concomitant]
     Active Substance: DULOXETINE HYDROCHLORIDE
     Indication: PAIN
     Dosage: 30 MG, UNK
  4. CYMBALTA [Concomitant]
     Active Substance: DULOXETINE HYDROCHLORIDE
     Indication: DEPRESSION
  5. KLONOPIN [Concomitant]
     Active Substance: CLONAZEPAM
     Indication: ANXIETY
     Dosage: 1 DF, DAILY
  6. BUSPIRONE [Concomitant]
     Active Substance: BUSPIRONE HYDROCHLORIDE
     Indication: ANXIETY
     Dosage: 5 MG, 3X/DAY

REACTIONS (1)
  - Drug ineffective for unapproved indication [Unknown]
